FAERS Safety Report 19261718 (Version 1)
Quarter: 2021Q2

REPORT INFORMATION
  Report Type: Report from Study
  Country: PL (occurrence: PL)
  Receive Date: 20210515
  Receipt Date: 20210515
  Transmission Date: 20210717
  Serious: Yes (Death, Hospitalization, Other)
  Sender: FDA-Public Use
  Company Number: PL-TAKEDA-PL201400873

PATIENT
  Age: 15 Year
  Sex: Male

DRUGS (4)
  1. IDURSULFASE [Suspect]
     Active Substance: IDURSULFASE
     Indication: MUCOPOLYSACCHARIDOSIS II
     Dosage: UNK, 1/WEEK
     Route: 065
     Dates: start: 20091016, end: 20131218
  2. IDURSULFASE [Suspect]
     Active Substance: IDURSULFASE
     Dosage: 18 MG, UNKNOWN
     Route: 041
     Dates: start: 20091016, end: 20131218
  3. ACETYLCYSTEINE. [Concomitant]
     Active Substance: ACETYLCYSTEINE
     Indication: SECRETION DISCHARGE
     Dosage: UNK, UNKNOWN
     Route: 065
     Dates: start: 2013
  4. AMBROXOL HYDROCHLORIDE [Concomitant]
     Active Substance: AMBROXOL HYDROCHLORIDE
     Indication: RESPIRATORY DISORDER
     Dosage: 5 ML, 1X/DAY:QD
     Route: 055
     Dates: start: 20091120

REACTIONS (5)
  - Death [Fatal]
  - Urticaria [Recovered/Resolved]
  - Pyrexia [Recovered/Resolved]
  - Dental caries [Recovered/Resolved]
  - Rash [Recovered/Resolved]

NARRATIVE: CASE EVENT DATE: 20091106
